FAERS Safety Report 17462014 (Version 2)
Quarter: 2020Q2

REPORT INFORMATION
  Report Type: Report from Study
  Country: DE (occurrence: DE)
  Receive Date: 20200226
  Receipt Date: 20200408
  Transmission Date: 20200713
  Serious: Yes (Hospitalization, Other)
  Sender: FDA-Public Use
  Company Number: DE-SUN PHARMACEUTICAL INDUSTRIES LTD-2020RR-238031

PATIENT
  Age: 76 Year
  Sex: Female

DRUGS (8)
  1. METOPROLOL SUCCINAT 47,5 [Concomitant]
     Active Substance: METOPROLOL SUCCINATE
     Indication: PRE-EXISTING DISEASE
     Dosage: 47.5 MILLIGRAMS, BID
     Route: 048
  2. TURFA GAMMA [Concomitant]
     Indication: PROPHYLAXIS
     Dosage: DOSE AS REQUIRED, DAILY
     Route: 048
  3. TROMCARDIN COMPLEX [Concomitant]
     Active Substance: DIETARY SUPPLEMENT
     Indication: PRE-EXISTING DISEASE
     Dosage: DOSE AS REQUIRED, DAILY
     Route: 048
  4. L-THYROXIN BETA 25 [Concomitant]
     Indication: PRE-EXISTING DISEASE
     Dosage: 25 MICROGRAMS, DAILY
     Route: 048
  5. OPIPRAMOL NEURAXPHARM 50 [Concomitant]
     Indication: PRE-EXISTING DISEASE
     Dosage: 50 MILLIGRAM, BID
     Route: 048
  6. EBRANTIL 90 [Concomitant]
     Indication: PRE-EXISTING DISEASE
     Dosage: 90 MILLIGRAMS, BID
     Route: 048
  7. RAMIPRIL 1A PHARMA 2,5 [Concomitant]
     Indication: PRE-EXISTING DISEASE
     Dosage: 2.5 MILLIGRAMS, TID
     Route: 048
  8. ODOMZO [Suspect]
     Active Substance: SONIDEGIB
     Indication: BASAL CELL CARCINOMA
     Dosage: 200 MILLIGRAMS, DAILY
     Route: 048
     Dates: start: 20200116

REACTIONS (1)
  - Cervix carcinoma [Not Recovered/Not Resolved]

NARRATIVE: CASE EVENT DATE: 20200211
